FAERS Safety Report 10310984 (Version 1)
Quarter: 2014Q3

REPORT INFORMATION
  Report Type: Spontaneous
  Country: FR (occurrence: None)
  Receive Date: 20140714
  Receipt Date: 20140714
  Transmission Date: 20150326
  Serious: Yes (Other)
  Sender: FDA-Public Use
  Company Number: 2424189

PATIENT
  Age: 4 Year
  Sex: Female
  Weight: 18 kg

DRUGS (8)
  1. CARBOPLATIN. [Suspect]
     Active Substance: CARBOPLATIN
     Indication: ASTROCYTOMA
     Dosage: 37 ML MILLILITRE(S), (UNKNOWN), INTRAVENOUS (NOT OTHERWISE SPECIFIED)?
     Route: 042
     Dates: start: 20140606, end: 20140606
  2. COLIMYCINE /00013203/ (COLISTIN SULFATE) [Concomitant]
     Active Substance: COLISTIN SULFATE
  3. INEXIUM /01479302/ [Concomitant]
     Active Substance: ESOMEPRAZOLE MAGNESIUM
  4. SCOPODERM /00008701/ [Concomitant]
  5. DEPAKINE /00228501/ [Concomitant]
     Active Substance: VALPROIC ACID
  6. DRIPTANE [Concomitant]
     Active Substance: OXYBUTYNIN
  7. BACTRIM [Concomitant]
     Active Substance: SULFAMETHOXAZOLE\TRIMETHOPRIM
  8. MESTINON [Concomitant]
     Active Substance: PYRIDOSTIGMINE BROMIDE

REACTIONS (8)
  - Lung infection [None]
  - Hypersensitivity [None]
  - Pathogen resistance [None]
  - Discomfort [None]
  - Febrile bone marrow aplasia [None]
  - Pseudomonas infection [None]
  - Convulsion [None]
  - Hypoglycaemia [None]

NARRATIVE: CASE EVENT DATE: 20140606
